FAERS Safety Report 9982372 (Version 1)
Quarter: 2014Q1

REPORT INFORMATION
  Report Type: Report from Study
  Country: US (occurrence: US)
  Receive Date: 20140307
  Receipt Date: 20140307
  Transmission Date: 20141002
  Serious: No
  Sender: FDA-Public Use
  Company Number: US-ABBVIE-13P-163-1180110-00

PATIENT
  Age: 59 Year
  Sex: Female

DRUGS (2)
  1. HUMIRA [Suspect]
     Indication: PSORIASIS
     Dates: start: 20131009, end: 20131009
  2. HUMIRA [Suspect]
     Dates: start: 20131016, end: 20131016

REACTIONS (2)
  - Dermatitis contact [Recovering/Resolving]
  - Rash erythematous [Recovering/Resolving]
